FAERS Safety Report 18667054 (Version 1)
Quarter: 2020Q4

REPORT INFORMATION
  Report Type: Spontaneous
  Country: US (occurrence: US)
  Receive Date: 20201228
  Receipt Date: 20201228
  Transmission Date: 20210114
  Serious: Yes (Death, Life-Threatening, Hospitalization, Other)
  Sender: FDA-Public Use
  Company Number: US-GLENMARK PHARMACEUTICALS-2020GMK051029

PATIENT
  Age: 65 Year
  Sex: Male

DRUGS (6)
  1. LINEZOLID. [Suspect]
     Active Substance: LINEZOLID
     Indication: MYCOBACTERIAL INFECTION
     Dosage: UNK
     Route: 065
  2. IMIPENEM [Suspect]
     Active Substance: IMIPENEM
     Indication: MYCOBACTERIAL INFECTION
     Dosage: UNK
     Route: 065
  3. AZITHROMYCIN ANHYDROUS. [Suspect]
     Active Substance: AZITHROMYCIN ANHYDROUS
     Indication: MYCOBACTERIAL INFECTION
     Dosage: UNK
     Route: 065
  4. MYCOPHENOLIC ACID. [Suspect]
     Active Substance: MYCOPHENOLIC ACID
     Indication: IMMUNOSUPPRESSION
     Dosage: 250 MILLIGRAM, BID (12 HOURS)
     Route: 065
  5. TACROLIMUS. [Suspect]
     Active Substance: TACROLIMUS
     Indication: IMMUNOSUPPRESSION
     Dosage: 2 MILLIGRAM, BID (12 HOURS)
     Route: 065
  6. PREDNISONE. [Suspect]
     Active Substance: PREDNISONE
     Indication: IMMUNOSUPPRESSION
     Dosage: 5 MILLIGRAM, OD
     Route: 065

REACTIONS (19)
  - Brain abscess [Fatal]
  - Acarodermatitis [Unknown]
  - Renal failure [Unknown]
  - Skin lesion [Unknown]
  - Pleural effusion [Unknown]
  - Generalised oedema [Unknown]
  - Multiple organ dysfunction syndrome [Fatal]
  - Acidosis [Unknown]
  - Escherichia infection [Unknown]
  - Abscess limb [Unknown]
  - Colitis [Unknown]
  - Clostridium difficile colitis [Unknown]
  - Urosepsis [Unknown]
  - Osteomyelitis acute [Fatal]
  - Osteomyelitis chronic [Fatal]
  - Drug ineffective [Fatal]
  - Septic shock [Fatal]
  - Tenosynovitis [Unknown]
  - Mycobacterium haemophilum infection [Fatal]
